FAERS Safety Report 23043608 (Version 3)
Quarter: 2023Q4

REPORT INFORMATION
  Report Type: Spontaneous
  Country: JP (occurrence: JP)
  Receive Date: 20231009
  Receipt Date: 20231206
  Transmission Date: 20240110
  Serious: Yes (Hospitalization)
  Sender: FDA-Public Use
  Company Number: JP-MTPC-MTPC2023-0024521

PATIENT
  Age: 77 Year
  Sex: Male

DRUGS (7)
  1. EDARAVONE [Suspect]
     Active Substance: EDARAVONE
     Indication: Amyotrophic lateral sclerosis
     Dosage: 5 MILLILITER, QD
     Route: 048
     Dates: start: 20230605
  2. EDARAVONE [Suspect]
     Active Substance: EDARAVONE
     Indication: Amyotrophic lateral sclerosis
     Dosage: 5 MILLILITER, QD
     Route: 048
     Dates: start: 20230605
  3. CILOSTAZOL [Concomitant]
     Active Substance: CILOSTAZOL
     Route: 065
  4. ICOSAPENT [Concomitant]
     Active Substance: ICOSAPENT
     Route: 065
  5. EDOXABAN TOSYLATE [Concomitant]
     Active Substance: EDOXABAN TOSYLATE
     Route: 065
  6. EDARAVONE [Concomitant]
     Active Substance: EDARAVONE
     Route: 051
  7. RILUZOLE [Concomitant]
     Active Substance: RILUZOLE
     Route: 065

REACTIONS (1)
  - Gastrointestinal haemorrhage [Recovered/Resolved]

NARRATIVE: CASE EVENT DATE: 20230822
